FAERS Safety Report 8764702 (Version 1)
Quarter: 2012Q4

REPORT INFORMATION
  Report Type: 
  Country: US (occurrence: US)
  Receive Date: 20120831
  Receipt Date: 20120831
  Transmission Date: 20130627
  Serious: Yes (Other)
  Sender: FDA-Public Use
  Company Number: US-ASTRAZENECA-2012SE61032

PATIENT
  Age: 52 Year
  Sex: Female

DRUGS (18)
  1. SEROQUEL [Suspect]
     Indication: MAJOR DEPRESSION
     Route: 048
  2. SEROQUEL [Suspect]
     Indication: MAJOR DEPRESSION
     Route: 048
     Dates: start: 201112
  3. SEROQUEL [Suspect]
     Indication: MAJOR DEPRESSION
     Route: 048
     Dates: start: 2012
  4. NEURONTIN [Concomitant]
     Indication: SYSTEMIC LUPUS ERYTHEMATOSUS
     Route: 048
  5. KLONOPIN [Concomitant]
     Indication: PANIC ATTACK
     Route: 048
  6. PLAQUENIL [Concomitant]
     Indication: SYSTEMIC LUPUS ERYTHEMATOSUS
     Route: 048
  7. SURMONTIL [Concomitant]
     Indication: DEPRESSION
     Route: 048
  8. SURMONTIL [Concomitant]
     Indication: DEPRESSION
     Route: 048
  9. VICODIN [Concomitant]
     Indication: PAIN
     Route: 048
     Dates: start: 201208
  10. VITAMIN D [Concomitant]
     Dosage: DAILY
  11. PEPCID [Concomitant]
     Route: 048
  12. XANAX [Concomitant]
  13. VALIUM [Concomitant]
  14. ZOFRAN [Concomitant]
  15. AUGMENTIN [Concomitant]
     Dosage: 875-125 MG, TWO TIMES DAY
     Route: 048
  16. RELPAX [Concomitant]
     Route: 048
  17. TRIAMCINOLONE ACETONIDE [Concomitant]
     Route: 061
  18. LASIX [Concomitant]
     Route: 048

REACTIONS (20)
  - Hernia [Unknown]
  - Anxiety [Unknown]
  - Depression [Unknown]
  - Malaise [Unknown]
  - Nausea [Unknown]
  - Nervousness [Unknown]
  - Panic attack [Unknown]
  - Rash [Recovered/Resolved]
  - Malaise [Unknown]
  - Stress [Unknown]
  - Hyperhidrosis [Unknown]
  - Pharyngeal oedema [Recovered/Resolved]
  - Drug hypersensitivity [Unknown]
  - Dyspnoea [Recovered/Resolved]
  - Dyspepsia [Unknown]
  - Weight increased [Unknown]
  - Vomiting [Unknown]
  - Drug ineffective [Recovered/Resolved]
  - Intentional drug misuse [Unknown]
  - Drug dose omission [Unknown]
